FAERS Safety Report 25664404 (Version 1)
Quarter: 2025Q3

REPORT INFORMATION
  Report Type: Spontaneous
  Country: US (occurrence: None)
  Receive Date: 20250808
  Receipt Date: 20250808
  Transmission Date: 20251021
  Serious: Yes (Other)
  Sender: FDA-CTU
  Company Number: None

PATIENT
  Age: 44 Year
  Sex: Female
  Weight: 63 kg

DRUGS (7)
  1. GLATOPA [Suspect]
     Active Substance: GLATIRAMER ACETATE
     Route: 058
     Dates: end: 20250807
  2. ESTROGENS [Concomitant]
     Active Substance: ESTROGENS
  3. progresterone [Concomitant]
  4. VITAMIN D [Concomitant]
     Active Substance: VITAMIN D NOS
  5. CALCIUM [Concomitant]
     Active Substance: CALCIUM
  6. VITAMIN C [Concomitant]
     Active Substance: ASCORBIC ACID
  7. VITAMIN B [Concomitant]
     Active Substance: VITAMIN B

REACTIONS (7)
  - Flushing [None]
  - Tachycardia [None]
  - Hyperhidrosis [None]
  - Nausea [None]
  - Dizziness [None]
  - Swelling face [None]
  - Pharyngeal swelling [None]

NARRATIVE: CASE EVENT DATE: 20250807
